FAERS Safety Report 16088854 (Version 2)
Quarter: 2019Q1

REPORT INFORMATION
  Report Type: Report from Study
  Country: US (occurrence: US)
  Receive Date: 20190319
  Receipt Date: 20190328
  Transmission Date: 20190418
  Serious: Yes (Death, Hospitalization, Other)
  Sender: FDA-Public Use
  Company Number: US-GILEAD-2019-0396366

PATIENT
  Age: 72 Year
  Sex: Female
  Weight: 60.32 kg

DRUGS (15)
  1. AMBRISENTAN [Suspect]
     Active Substance: AMBRISENTAN
     Indication: PULMONARY HYPERTENSION
     Dosage: 10 MG
     Route: 065
     Dates: start: 20150331
  2. ADCIRCA [Concomitant]
     Active Substance: TADALAFIL
  3. ASCAL [ACETYLSALICYLATE CALCIUM] [Concomitant]
  4. ANORO ELLIPTA [Concomitant]
     Active Substance: UMECLIDINIUM BROMIDE\VILANTEROL TRIFENATATE
  5. LASIX [Concomitant]
     Active Substance: FUROSEMIDE
  6. LIPITOR [Concomitant]
     Active Substance: ATORVASTATIN CALCIUM
  7. IRON [Concomitant]
     Active Substance: IRON
  8. CARAFATE [Concomitant]
     Active Substance: SUCRALFATE
  9. PULMICORT TURBUHALER [Concomitant]
     Active Substance: BUDESONIDE
  10. VITAMIN D [Concomitant]
     Active Substance: CHOLECALCIFEROL
  11. PROTONIX [OMEPRAZOLE] [Concomitant]
     Active Substance: OMEPRAZOLE
  12. PREDNISONE. [Concomitant]
     Active Substance: PREDNISONE
  13. ZOLOFT [Concomitant]
     Active Substance: SERTRALINE HYDROCHLORIDE
  14. AMBRISENTAN [Suspect]
     Active Substance: AMBRISENTAN
     Indication: CONNECTIVE TISSUE DISORDER
  15. EPOGEN [Concomitant]
     Active Substance: ERYTHROPOIETIN

REACTIONS (6)
  - Cardiac failure acute [Fatal]
  - Chronic obstructive pulmonary disease [Fatal]
  - General physical health deterioration [Fatal]
  - Pleural effusion [Fatal]
  - Dyspnoea [Recovered/Resolved]
  - Acute kidney injury [Fatal]

NARRATIVE: CASE EVENT DATE: 20190313
